FAERS Safety Report 11107804 (Version 2)
Quarter: 2015Q3

REPORT INFORMATION
  Report Type: Report from Study
  Country: US (occurrence: US)
  Receive Date: 20150512
  Receipt Date: 20150917
  Transmission Date: 20151125
  Serious: Yes (Hospitalization, Other)
  Sender: FDA-Public Use
  Company Number: PHEH2015US008419

PATIENT
  Age: 36 Year
  Sex: Female
  Weight: 69.84 kg

DRUGS (13)
  1. KLONOPIN [Concomitant]
     Active Substance: CLONAZEPAM
     Indication: PRODUCT USED FOR UNKNOWN INDICATION
     Dosage: 1 DF (0.5 MG), TID
     Route: 048
  2. GABAPENTIN. [Concomitant]
     Active Substance: GABAPENTIN
     Indication: PRODUCT USED FOR UNKNOWN INDICATION
     Dosage: 400 MG, (2 IN AM, 2 IN AFTERNOON, 4 IN NIGHT)
     Route: 048
  3. CALCIUM CARBONATE AND VITAMIN D [Concomitant]
     Indication: PRODUCT USED FOR UNKNOWN INDICATION
     Dosage: UNK
     Route: 048
  4. CLONAZEPAM. [Concomitant]
     Active Substance: CLONAZEPAM
     Indication: PRODUCT USED FOR UNKNOWN INDICATION
     Dosage: 0.5 MG, 3X DAILY, UPTO 5 TIMES DAILY
     Route: 048
  5. GILENYA [Suspect]
     Active Substance: FINGOLIMOD HYDROCHLORIDE
     Indication: MULTIPLE SCLEROSIS
     Dosage: 0.5 MG, QD
     Route: 048
     Dates: start: 2012, end: 201406
  6. SEROQUEL [Concomitant]
     Active Substance: QUETIAPINE FUMARATE
     Indication: PRODUCT USED FOR UNKNOWN INDICATION
     Dosage: 100 MG, BID
     Route: 048
  7. VITAMIN D [Concomitant]
     Active Substance: CHOLECALCIFEROL
     Indication: PRODUCT USED FOR UNKNOWN INDICATION
     Dosage: 1 DF, QD
     Route: 048
  8. TOPAMAX [Concomitant]
     Active Substance: TOPIRAMATE
     Indication: PRODUCT USED FOR UNKNOWN INDICATION
     Dosage: 50 MG, BID
     Route: 048
  9. BOTOX [Concomitant]
     Active Substance: ONABOTULINUMTOXINA
     Indication: TORTICOLLIS
     Route: 065
  10. BACLOFEN. [Concomitant]
     Active Substance: BACLOFEN
     Dosage: 10 MG, BID
     Route: 048
  11. BACLOFEN. [Concomitant]
     Active Substance: BACLOFEN
     Indication: PRODUCT USED FOR UNKNOWN INDICATION
     Dosage: 10 MG, TID
     Route: 048
  12. CYMBALTA [Concomitant]
     Active Substance: DULOXETINE HYDROCHLORIDE
     Indication: PRODUCT USED FOR UNKNOWN INDICATION
     Dosage: 60 MG, BID
     Route: 048
  13. BOTOX [Suspect]
     Active Substance: ONABOTULINUMTOXINA
     Indication: HEADACHE
     Route: 065

REACTIONS (41)
  - Extensor plantar response [Unknown]
  - Neutrophil count increased [Unknown]
  - Eosinophil percentage increased [Unknown]
  - Lymphocyte percentage increased [Unknown]
  - Hemiparesis [Unknown]
  - Visual acuity reduced [Unknown]
  - Memory impairment [Unknown]
  - Gait spastic [Unknown]
  - Muscle spasms [Unknown]
  - Intervertebral disc protrusion [Unknown]
  - Blood sodium increased [Unknown]
  - Blood albumin increased [Unknown]
  - Red blood cell count decreased [Unknown]
  - Pulmonary embolism [Unknown]
  - Neutrophil percentage abnormal [Unknown]
  - White blood cell count increased [Unknown]
  - Monocyte count decreased [Unknown]
  - Varicella virus test positive [Unknown]
  - Bladder discomfort [Unknown]
  - Headache [Unknown]
  - Palpitations [Unknown]
  - Blood glucose increased [Unknown]
  - Haematocrit decreased [Unknown]
  - Vitamin D deficiency [Not Recovered/Not Resolved]
  - Demyelination [Unknown]
  - Pollakiuria [Unknown]
  - Hyperreflexia [Unknown]
  - Loss of libido [Unknown]
  - Fatigue [Not Recovered/Not Resolved]
  - Protein total increased [Unknown]
  - Haemoglobin decreased [Unknown]
  - Blood urea decreased [Unknown]
  - Blood alkaline phosphatase increased [Unknown]
  - Central nervous system lesion [Unknown]
  - Micturition urgency [Unknown]
  - Lymphoid tissue hyperplasia [Unknown]
  - Lacrimal gland enlargement [Unknown]
  - Blood chloride increased [Unknown]
  - Mental disorder [Not Recovered/Not Resolved]
  - Multiple sclerosis [Unknown]
  - Gait disturbance [Unknown]

NARRATIVE: CASE EVENT DATE: 20140423
